FAERS Safety Report 5606778-3 (Version None)
Quarter: 2008Q1

REPORT INFORMATION
  Report Type: 
  Country: None (occurrence: None)
  Receive Date: 20080125
  Receipt Date: 20080114
  Transmission Date: 20080703
  Serious: Yes (Other)
  Sender: FDA-Public Use
  Company Number: 230488J08USA

PATIENT
  Age: 30 Year
  Sex: Female

DRUGS (2)
  1. REBIF [Suspect]
     Indication: MULTIPLE SCLEROSIS
     Dosage: 44 MCG, 3 IN 1 WEEKS, SUBCUTANEOUS
     Route: 058
     Dates: start: 20060925
  2. DIABETES MELLITUS MEDICATIONS (DRUG USED IN DIABETES) [Concomitant]

REACTIONS (3)
  - CERVICAL DYSPLASIA [None]
  - GLYCOSYLATED HAEMOGLOBIN INCREASED [None]
  - THYROID MASS [None]
